FAERS Safety Report 18886110 (Version 1)
Quarter: 2021Q1

REPORT INFORMATION
  Report Type: Spontaneous
  Country: GB (occurrence: GB)
  Receive Date: 20210212
  Receipt Date: 20210212
  Transmission Date: 20210420
  Serious: Yes (Other)
  Sender: FDA-Public Use
  Company Number: GB-SCIEGEN-2021SCILIT00084

PATIENT
  Age: 48 Year
  Sex: Male

DRUGS (9)
  1. CYCLOPHOSPHAMIDE. [Concomitant]
     Active Substance: CYCLOPHOSPHAMIDE
     Indication: B-CELL LYMPHOMA
     Route: 065
  2. PREDNISOLONE. [Concomitant]
     Active Substance: PREDNISOLONE
     Indication: B-CELL LYMPHOMA
     Route: 065
  3. ARIPIPRAZOLE. [Suspect]
     Active Substance: ARIPIPRAZOLE
     Indication: PSYCHOTIC DISORDER
     Route: 065
  4. ARIPIPRAZOLE. [Suspect]
     Active Substance: ARIPIPRAZOLE
     Indication: SCHIZOPHRENIA
  5. OLANZAPINE. [Suspect]
     Active Substance: OLANZAPINE
     Indication: SCHIZOPHRENIA
  6. DOXORUBICIN [Concomitant]
     Active Substance: DOXORUBICIN
     Indication: B-CELL LYMPHOMA
     Route: 065
  7. VINCRISTINE [Concomitant]
     Active Substance: VINCRISTINE
     Indication: B-CELL LYMPHOMA
     Route: 065
  8. RITUXIMAB. [Concomitant]
     Active Substance: RITUXIMAB
     Indication: B-CELL LYMPHOMA
     Route: 065
  9. OLANZAPINE. [Suspect]
     Active Substance: OLANZAPINE
     Indication: PSYCHOTIC DISORDER
     Route: 065

REACTIONS (3)
  - Condition aggravated [Unknown]
  - Drug ineffective [Unknown]
  - Mental status changes [Recovering/Resolving]
